FAERS Safety Report 14339599 (Version 2)
Quarter: 2018Q1

REPORT INFORMATION
  Report Type: Other
  Country: NL (occurrence: NL)
  Receive Date: 20171230
  Receipt Date: 20180102
  Transmission Date: 20180509
  Serious: Yes (Hospitalization)
  Sender: FDA-Public Use
  Company Number: NL-REGULIS-2038047

PATIENT
  Age: 84 Year
  Sex: Female
  Weight: 71 kg

DRUGS (3)
  1. APROVEL [Concomitant]
     Active Substance: IRBESARTAN
  2. METHYLENE BLUE. [Suspect]
     Active Substance: METHYLENE BLUE
     Dates: start: 20171113, end: 20171113
  3. LEVOCITINE [Concomitant]

REACTIONS (4)
  - Urticaria [Recovered/Resolved]
  - Micturition disorder [Recovered/Resolved with Sequelae]
  - Off label use [Unknown]
  - Chromaturia [Recovered/Resolved]

NARRATIVE: CASE EVENT DATE: 20171113
